FAERS Safety Report 4324430-1 (Version None)
Quarter: 2004Q1

REPORT INFORMATION
  Report Type: 
  Country: None (occurrence: None)
  Receive Date: 20040326
  Receipt Date: 20040211
  Transmission Date: 20041129
  Serious: No
  Sender: FDA-Public Use
  Company Number: US-GLAXOSMITHKLINE-A0497787A

PATIENT
  Age: 65 Year
  Sex: Female

DRUGS (14)
  1. ADVAIR DISKUS 100/50 [Suspect]
     Indication: ASTHMA
     Dosage: 1PUFF TWICE PER DAY
     Route: 055
  2. ALBUTEROL [Concomitant]
  3. LEVOXYL [Concomitant]
  4. LISINOPRIL [Concomitant]
  5. CLARINEX [Concomitant]
  6. PREDNISONE [Concomitant]
  7. VIT B1 [Concomitant]
  8. VIT B6 [Concomitant]
  9. VIT B12 [Concomitant]
  10. FOLIC ACID [Concomitant]
  11. SELENIUM TRACE METAL ADDITIVE [Concomitant]
     Route: 065
  12. GARLIC [Concomitant]
  13. VIT E [Concomitant]
  14. VIT C [Concomitant]

REACTIONS (3)
  - EYE PAIN [None]
  - PRURITUS [None]
  - SINUSITIS [None]
